FAERS Safety Report 6400815-4 (Version None)
Quarter: 2009Q4

REPORT INFORMATION
  Report Type: 
  Country: None (occurrence: None)
  Receive Date: 20091009
  Receipt Date: 20091001
  Transmission Date: 20100525
  Serious: Yes (Hospitalization)
  Sender: FDA-Public Use
  Company Number: US-GDP-09406754

PATIENT
  Age: 55 Year
  Sex: Female

DRUGS (1)
  1. PERIOSTAT [Suspect]
     Indication: PERIODONTAL DISEASE
     Dosage: (20 MG BID ORAL)
     Route: 048
     Dates: start: 20070101

REACTIONS (1)
  - LARGE INTESTINE PERFORATION [None]
